FAERS Safety Report 4967986-8 (Version None)
Quarter: 2006Q2

REPORT INFORMATION
  Report Type: 
  Country: None (occurrence: None)
  Receive Date: 20060403
  Receipt Date: 20060318
  Transmission Date: 20061013
  Serious: Yes (Disabling, Other)
  Sender: FDA-Public Use
  Company Number: 2006027950

PATIENT
  Age: 47 Year
  Sex: Male
  Weight: 99.7913 kg

DRUGS (6)
  1. VIAGRA [Suspect]
     Indication: ERECTILE DYSFUNCTION
     Dosage: 10 MG (10 MG, UNKNOWN), UNKNOWN
     Route: 065
     Dates: start: 20030301
  2. DILANTIN [Suspect]
     Indication: CONVULSION
     Dosage: 300 MG (300 MG, 1 IN 1 D), UNKNOWN
     Route: 065
     Dates: start: 20030101
  3. PREDNISONE TAB [Suspect]
     Indication: SARCOIDOSIS
     Dosage: UNKNOWN (40 MG, DAILY
     Dates: start: 20050803
  4. DEPAKOTE [Suspect]
     Indication: CONVULSION
     Dosage: UNKNOWN
     Route: 065
     Dates: start: 20030101, end: 20030101
  5. ALL OTHER THERAPEUTIC PRODUCTS (ALL OTHER THERAPEUTIC PRODUCTS) [Suspect]
     Indication: ILL-DEFINED DISORDER
     Dosage: UNKNOWN
     Route: 065
  6. LEVITRA [Suspect]
     Indication: ILL-DEFINED DISORDER
     Dosage: UNKNOWN (20 MG, UNKNOWN), UNKNOWN
     Route: 065

REACTIONS (28)
  - AGGRESSION [None]
  - CEREBRAL SARCOIDOSIS [None]
  - CONFABULATION [None]
  - CONFUSION POSTOPERATIVE [None]
  - CONFUSIONAL STATE [None]
  - CONVULSION [None]
  - DIFFICULTY IN WALKING [None]
  - DISORIENTATION [None]
  - DISSOCIATIVE DISORDER [None]
  - DISTURBANCE IN ATTENTION [None]
  - DIZZINESS [None]
  - DRUG INEFFECTIVE [None]
  - DYSGEUSIA [None]
  - DYSSTASIA [None]
  - EMOTIONAL DISORDER [None]
  - ERECTILE DYSFUNCTION [None]
  - HEADACHE [None]
  - LUNG DISORDER [None]
  - MEMORY IMPAIRMENT [None]
  - MENTAL IMPAIRMENT [None]
  - NEUROLOGICAL SYMPTOM [None]
  - NORMAL PRESSURE HYDROCEPHALUS [None]
  - OVERWEIGHT [None]
  - PERSONALITY CHANGE [None]
  - POST PROCEDURAL COMPLICATION [None]
  - SPEECH DISORDER [None]
  - VISUAL DISTURBANCE [None]
  - VISUAL FIELD DEFECT [None]
